FAERS Safety Report 21758584 (Version 1)
Quarter: 2022Q4

REPORT INFORMATION
  Report Type: Spontaneous
  Country: US (occurrence: US)
  Receive Date: 20221221
  Receipt Date: 20221221
  Transmission Date: 20230113
  Serious: No
  Sender: FDA-Public Use
  Company Number: US-SA-SAC20221219000295

PATIENT
  Age: 47 Year
  Sex: Female
  Weight: 76.2 kg

DRUGS (3)
  1. DUPIXENT [Suspect]
     Active Substance: DUPILUMAB
     Indication: Dermatitis atopic
     Dosage: 300MG,QOW
     Route: 058
     Dates: start: 20210521
  2. CLARITIN [Concomitant]
     Active Substance: LORATADINE
     Dosage: UNK
  3. COVID-19 VACCINE [Concomitant]
     Dosage: UNK

REACTIONS (15)
  - Respiratory syncytial virus infection [Recovering/Resolving]
  - Chills [Unknown]
  - Pain [Unknown]
  - Lethargy [Unknown]
  - Fatigue [Unknown]
  - Secretion discharge [Unknown]
  - Eczema Coxsackium [Unknown]
  - Blister [Unknown]
  - Dermatitis atopic [Unknown]
  - Blister [Unknown]
  - Rash macular [Unknown]
  - Hand-foot-and-mouth disease [Unknown]
  - Nasopharyngitis [Recovering/Resolving]
  - Pyrexia [Unknown]
  - Oropharyngeal pain [Unknown]

NARRATIVE: CASE EVENT DATE: 20220712
